FAERS Safety Report 7571080-X (Version None)
Quarter: 2011Q2

REPORT INFORMATION
  Report Type: 
  Country: None (occurrence: None)
  Receive Date: 20110624
  Receipt Date: 20110620
  Transmission Date: 20111010
  Serious: Yes (Life-Threatening)
  Sender: FDA-Public Use
  Company Number: GB-ASTRAZENECA-2011SE37241

PATIENT
  Age: 21 Year
  Sex: Female
  Weight: 50 kg

DRUGS (19)
  1. SYMBICORT [Concomitant]
     Dosage: 2 DF TWO TIMES A DAY
     Route: 055
  2. FERROUS SULFATE TAB [Concomitant]
     Route: 048
  3. PHYTONADIONE [Concomitant]
  4. ALBUTEROL [Concomitant]
     Route: 055
  5. CERAZETTE [Concomitant]
     Route: 048
  6. CREON [Concomitant]
     Route: 048
  7. FLOXACILLIN SODIUM [Concomitant]
     Route: 048
  8. MEROPENEM [Suspect]
     Indication: CYSTIC FIBROSIS
     Route: 042
     Dates: start: 20110105, end: 20110430
  9. AZITHROMYCIN [Concomitant]
     Route: 048
  10. MONTELUKAST SODIUM [Concomitant]
     Route: 048
  11. TOBRAMYCIN [Concomitant]
     Indication: CYSTIC FIBROSIS
     Route: 042
     Dates: start: 20110430, end: 20110508
  12. MEROPENEM [Suspect]
     Route: 042
     Dates: start: 20110430, end: 20110508
  13. PROMIXIN [Concomitant]
  14. VITAMIN A AND D CONCENTRATE [Concomitant]
  15. VITAMIN E [Concomitant]
  16. ACETAMINOPHEN AND CODEINE PHOSPHATE [Concomitant]
  17. PULMOZYME [Concomitant]
  18. LANSOPRAZOLE [Concomitant]
     Route: 048
  19. LORATADINE [Concomitant]
     Route: 048

REACTIONS (2)
  - PRODUCT SUBSTITUTION ISSUE [None]
  - ANAPHYLACTIC REACTION [None]
